FAERS Safety Report 6703705-2 (Version None)
Quarter: 2010Q2

REPORT INFORMATION
  Report Type: 
  Country: None (occurrence: None)
  Receive Date: 20100430
  Receipt Date: 20100310
  Transmission Date: 20101027
  Serious: No
  Sender: FDA-Public Use
  Company Number: A0849518A

PATIENT
  Age: 36 Year
  Sex: Female

DRUGS (2)
  1. FLOVENT [Suspect]
     Indication: ASTHMA
     Dosage: 2PUFF TWICE PER DAY
     Route: 055
     Dates: start: 20100215
  2. ALBUTEROL [Concomitant]

REACTIONS (4)
  - CHAPPED LIPS [None]
  - DRY MOUTH [None]
  - NERVOUSNESS [None]
  - OVERDOSE [None]
